FAERS Safety Report 5757508-6 (Version None)
Quarter: 2008Q2

REPORT INFORMATION
  Report Type: 
  Country: None (occurrence: None)
  Receive Date: 20080529
  Receipt Date: 20080521
  Transmission Date: 20081010
  Serious: Yes (Other)
  Sender: FDA-Public Use
  Company Number: 2008013446

PATIENT
  Age: 33 Year
  Sex: Female
  Weight: 57 kg

DRUGS (3)
  1. CETIRIZINE HCL [Suspect]
     Dosage: 10 MG DAILY, ORAL
     Route: 048
  2. TEMAZEPAM [Suspect]
     Dosage: 1 DOSAGE FORM AS NECESSARY, ORAL
     Route: 048
  3. MULTIVITAMIN [Concomitant]

REACTIONS (1)
  - DEPRESSION [None]
